FAERS Safety Report 4378721-9 (Version None)
Quarter: 2004Q2

REPORT INFORMATION
  Report Type: 
  Country: None (occurrence: None)
  Receive Date: 20040616
  Receipt Date: 20040604
  Transmission Date: 20050107
  Serious: Yes (Life-Threatening)
  Sender: FDA-Public Use
  Company Number: PHBS2004CH07347

PATIENT
  Age: 90 Year
  Sex: Female

DRUGS (13)
  1. LOPRESSOR [Suspect]
     Indication: ATRIAL FIBRILLATION
     Dosage: 150 MG/DAY
     Route: 048
     Dates: start: 20040513, end: 20040514
  2. ISOPTIN SR [Suspect]
     Indication: ATRIAL FIBRILLATION
     Dosage: 120 MG/DAY
     Dates: end: 20040515
  3. ISOPTIN SR [Suspect]
     Dosage: 120 MG/DAY
     Dates: start: 20040517
  4. CONCOR [Suspect]
     Indication: ATRIAL FIBRILLATION
     Dosage: 2.5 MG/DAY
  5. DANCOR [Concomitant]
     Indication: MYOCARDIAL ISCHAEMIA
     Dosage: 10 MG/DAY
     Dates: end: 20040514
  6. TORSEMIDE [Concomitant]
     Indication: CARDIAC FAILURE
     Dosage: 5 OR 10 MG/DAY
  7. DAFALGAN [Concomitant]
     Indication: PAIN
     Dosage: 1000 MG/DAY
  8. MERONEM [Concomitant]
     Indication: INFECTION
     Dosage: 2 G/DAY
     Route: 042
     Dates: start: 20040419
  9. LIQUEMINE [Concomitant]
     Indication: ANTICOAGULATION DRUG LEVEL THERAPEUTIC
     Route: 042
     Dates: start: 20040318
  10. CALCIUM [Concomitant]
     Indication: OSTEOPOROSIS
     Dosage: 1 G/DAY
  11. VI-DE 3 [Concomitant]
     Indication: OSTEOPOROSIS
     Dosage: 5 DRP/DAY
  12. MORPHINE [Concomitant]
     Dosage: UNK, ONCE/SINGLE
     Route: 058
     Dates: start: 20040513, end: 20040513
  13. BREVIBLOC [Concomitant]
     Indication: TACHYCARDIA
     Dosage: 20 MG, ONCE/SINGLE
     Route: 042
     Dates: start: 20040512, end: 20040512

REACTIONS (7)
  - ATRIAL FIBRILLATION [None]
  - BRADYCARDIA [None]
  - BUNDLE BRANCH BLOCK LEFT [None]
  - DYSPNOEA EXACERBATED [None]
  - LEFT VENTRICULAR FAILURE [None]
  - OXYGEN SATURATION DECREASED [None]
  - TACHYPNOEA [None]
